FAERS Safety Report 13869288 (Version 19)
Quarter: 2020Q2

REPORT INFORMATION
  Report Type: Spontaneous
  Country: CA (occurrence: CA)
  Receive Date: 20170815
  Receipt Date: 20200626
  Transmission Date: 20200713
  Serious: Yes (Hospitalization, Other)
  Sender: FDA-Public Use
  Company Number: CA-PFIZER INC-2017117209

PATIENT
  Age: 54 Year
  Sex: Male
  Weight: 110 kg

DRUGS (31)
  1. INFLECTRA [Suspect]
     Active Substance: INFLIXIMAB-DYYB
     Indication: PSORIATIC ARTHROPATHY
     Dosage: 500 MG, EVERY 0, 2 AND 6, THEN EVERY 8 WEEKS FOR 12 MONTHS)
     Route: 042
     Dates: start: 20160706
  2. INFLECTRA [Suspect]
     Active Substance: INFLIXIMAB-DYYB
     Dosage: 600 MG, (EVERY 8 WEEKS)
     Route: 042
     Dates: start: 20190425
  3. BENADRYL [Concomitant]
     Active Substance: DIPHENHYDRAMINE HYDROCHLORIDE
     Dosage: 50 UNK, UNK
     Route: 048
     Dates: start: 20191121, end: 20191121
  4. DIPHENHYDRAMINE. [Concomitant]
     Active Substance: DIPHENHYDRAMINE
     Indication: PREMEDICATION
     Dosage: 50 MG, UNK
     Route: 048
     Dates: start: 20200512, end: 20200512
  5. INFLECTRA [Suspect]
     Active Substance: INFLIXIMAB-DYYB
     Dosage: 600 MG, (EVERY 8 WEEKS)
     Route: 042
     Dates: start: 20180913
  6. INFLECTRA [Suspect]
     Active Substance: INFLIXIMAB-DYYB
     Dosage: 600 MG, (EVERY 8 WEEKS)
     Route: 042
     Dates: start: 20191010
  7. METHOTREXATE SODIUM. [Suspect]
     Active Substance: METHOTREXATE SODIUM
     Dosage: 12.5 MG, WEEKLY
     Route: 048
     Dates: start: 201702
  8. ROSUVASTATIN. [Concomitant]
     Active Substance: ROSUVASTATIN
     Indication: HYPERTENSION
     Dosage: 4 MG, 1X/DAY
     Route: 065
  9. JANUMET [Concomitant]
     Active Substance: METFORMIN HYDROCHLORIDE\SITAGLIPTIN PHOSPHATE
     Indication: DIABETES MELLITUS
     Dosage: 50 MG, 2X/DAY
     Route: 048
  10. INFLECTRA [Suspect]
     Active Substance: INFLIXIMAB-DYYB
     Dosage: 600 MG, (EVERY 8 WEEKS)
     Route: 042
     Dates: start: 20180719
  11. BENADRYL [Concomitant]
     Active Substance: DIPHENHYDRAMINE HYDROCHLORIDE
     Indication: PREMEDICATION
     Dosage: 50 MG, UNK
     Route: 048
  12. INFLECTRA [Suspect]
     Active Substance: INFLIXIMAB-DYYB
     Dosage: 600 MG, (EVERY 8 WEEKS)
     Route: 042
     Dates: start: 20180522
  13. INFLECTRA [Suspect]
     Active Substance: INFLIXIMAB-DYYB
     Dosage: 600 MG, (EVERY 8 WEEKS)
     Route: 042
     Dates: start: 20190620
  14. INFLECTRA [Suspect]
     Active Substance: INFLIXIMAB-DYYB
     Dosage: 600 MG, (EVERY 6 WEEKS)
     Route: 042
     Dates: start: 20200331
  15. INFLECTRA [Suspect]
     Active Substance: INFLIXIMAB-DYYB
     Dosage: 600 MG, (EVERY 6 WEEKS)
     Route: 042
     Dates: start: 20200623
  16. BENADRYL [Concomitant]
     Active Substance: DIPHENHYDRAMINE HYDROCHLORIDE
     Dosage: 50 MG, UNK
     Dates: start: 20190815
  17. INFLECTRA [Suspect]
     Active Substance: INFLIXIMAB-DYYB
     Dosage: 600 MG, (EVERY 8 WEEKS)
     Route: 042
     Dates: start: 20190103
  18. INFLECTRA [Suspect]
     Active Substance: INFLIXIMAB-DYYB
     Dosage: 600 MG, (EVERY 6 WEEKS)
     Route: 042
     Dates: start: 20191121
  19. INFLECTRA [Suspect]
     Active Substance: INFLIXIMAB-DYYB
     Dosage: 600 MG, (EVERY 6 WEEKS)
     Route: 042
     Dates: start: 20200114
  20. CORTISONE [Concomitant]
     Active Substance: CORTISONE
     Dosage: UNK UNK, AS NEEDED
     Route: 065
  21. INFLECTRA [Suspect]
     Active Substance: INFLIXIMAB-DYYB
     Dosage: 500 MG EVERY 0, 2, 6 WEEKS, THEN EVERY 8 WEEKS
     Route: 042
     Dates: start: 20160725, end: 20170613
  22. INFLECTRA [Suspect]
     Active Substance: INFLIXIMAB-DYYB
     Dosage: 600 MG, (EVERY 8 WEEKS)
     Route: 042
     Dates: start: 20160725, end: 20170316
  23. INFLECTRA [Suspect]
     Active Substance: INFLIXIMAB-DYYB
     Dosage: 600 MG, (EVERY 8 WEEKS)
     Route: 042
     Dates: start: 20170815, end: 20191010
  24. INFLECTRA [Suspect]
     Active Substance: INFLIXIMAB-DYYB
     Dosage: 600 MG, (EVERY 8 WEEKS)
     Route: 042
     Dates: start: 20171207
  25. INFLECTRA [Suspect]
     Active Substance: INFLIXIMAB-DYYB
     Dosage: 600 MG, (EVERY 8 WEEKS)
     Route: 042
     Dates: start: 20190815
  26. INFLECTRA [Suspect]
     Active Substance: INFLIXIMAB-DYYB
     Dosage: 600 MG, (EVERY 8 WEEKS)
     Route: 042
     Dates: start: 20181108
  27. INFLECTRA [Suspect]
     Active Substance: INFLIXIMAB-DYYB
     Dosage: 600 MG, (EVERY 8 WEEKS)
     Route: 042
     Dates: start: 20180719
  28. INFLECTRA [Suspect]
     Active Substance: INFLIXIMAB-DYYB
     Dosage: 600 MG, (EVERY 6 WEEKS)
     Route: 042
     Dates: start: 20200512
  29. OXYCODONE [Concomitant]
     Active Substance: OXYCODONE
     Indication: PAIN
     Dosage: 10 MG, AS NEEDED (CURRENTLY 1 TAB ONCE DAILY)
     Route: 048
  30. LANTUS [Concomitant]
     Active Substance: INSULIN GLARGINE
     Dosage: UNK
     Route: 065
  31. DIPHENHYDRAMINE. [Concomitant]
     Active Substance: DIPHENHYDRAMINE
     Dosage: 50 MG, UNK
     Route: 048
     Dates: start: 20200623, end: 20200623

REACTIONS (21)
  - Weight decreased [Unknown]
  - Blood pressure increased [Unknown]
  - Flushing [Recovered/Resolved]
  - Intentional product use issue [Unknown]
  - Heart rate decreased [Unknown]
  - Orthostatic hypotension [Unknown]
  - Condition aggravated [Recovering/Resolving]
  - Skin exfoliation [Recovering/Resolving]
  - Chemical burns of eye [Unknown]
  - Weight increased [Unknown]
  - Electrocardiogram abnormal [Unknown]
  - Off label use [Unknown]
  - Nausea [Recovered/Resolved]
  - Body temperature decreased [Unknown]
  - Pruritus [Recovered/Resolved]
  - Malaise [Recovered/Resolved]
  - Sinusitis [Recovered/Resolved]
  - Arthralgia [Unknown]
  - Blood pressure fluctuation [Unknown]
  - Inappropriate schedule of product administration [Unknown]
  - Off label use [Unknown]

NARRATIVE: CASE EVENT DATE: 2017
